FAERS Safety Report 4892190-1 (Version None)
Quarter: 2006Q1

REPORT INFORMATION
  Report Type: 
  Country: None (occurrence: None)
  Receive Date: 20060126
  Receipt Date: 20060118
  Transmission Date: 20060701
  Serious: Yes (Hospitalization, Other)
  Sender: FDA-Public Use
  Company Number: BR-JNJFOC-20051204057

PATIENT
  Age: 43 Year
  Sex: Female
  Weight: 73 kg

DRUGS (7)
  1. HALOPERIDOL DECANOATE [Suspect]
     Dosage: (USED 2 AMPULES PER MONTH)
     Route: 050
  2. HALOPERIDOL DECANOATE [Suspect]
     Route: 050
  3. HALOPERIDOL DECANOATE [Suspect]
     Indication: DRUG USE FOR UNKNOWN INDICATION
     Dosage: (THREE DOSES)
     Route: 050
  4. DORMONID [Concomitant]
  5. OXYMETAZOLINE [Concomitant]
  6. RIVOTRIL [Concomitant]
  7. ZYPREXA [Concomitant]
     Dosage: ^TOOK 7 OR 8 AMPULES^

REACTIONS (5)
  - ALOPECIA [None]
  - APTYALISM [None]
  - SKIN DISCOLOURATION [None]
  - SKIN EXFOLIATION [None]
  - TACHYCARDIA [None]
